FAERS Safety Report 9251408 (Version 1)
Quarter: 2013Q1

REPORT INFORMATION
  Report Type: Spontaneous
  Country: US (occurrence: None)
  Receive Date: 20130305
  Receipt Date: 20130305
  Transmission Date: 20140127
  Serious: Yes (Other)
  Sender: FDA-Public Use
  Company Number: 163-21880-12093415

PATIENT
  Age: 57 Year
  Sex: Female
  Weight: 58.06 kg

DRUGS (9)
  1. REVLIMID [Suspect]
     Indication: PLASMA CELL MYELOMA
     Dates: start: 20120201
  2. Z PAK (AZITHROMYCIN [Concomitant]
  3. AREDIA (PAMIDRONATE DISODIUM) [Concomitant]
  4. BACLOFEN (BACLOFEN) [Concomitant]
  5. FLONASE (FLUTICASONE PROPIONATE) [Concomitant]
  6. GABAPENTIN (GABAPENTIN) [Concomitant]
  7. OXYCODONE (OXYCODONE) [Concomitant]
  8. VITAMIN C [Concomitant]
  9. VITAMIN D (ERGOCALCIFEROL) [Concomitant]

REACTIONS (1)
  - Nasopharyngitis [None]
